FAERS Safety Report 14551311 (Version 1)
Quarter: 2018Q1

REPORT INFORMATION
  Report Type: Spontaneous
  Country: FR (occurrence: FR)
  Receive Date: 20180220
  Receipt Date: 20180220
  Transmission Date: 20180509
  Serious: Yes (Other)
  Sender: FDA-Public Use
  Company Number: FR-MERCK KGAA-2042273

PATIENT
  Age: 57 Year
  Sex: Female

DRUGS (1)
  1. NOVOTHYROX [Suspect]
     Active Substance: LEVOTHYROXINE SODIUM
     Indication: AUTOIMMUNE THYROIDITIS
     Dates: start: 201704, end: 201710

REACTIONS (17)
  - Dyspnoea [None]
  - Loss of personal independence in daily activities [None]
  - Blood test abnormal [Recovered/Resolved]
  - Mental status changes [None]
  - Pruritus [None]
  - Muscle spasms [None]
  - Suicidal ideation [None]
  - Condition aggravated [Recovered/Resolved]
  - Nervousness [None]
  - Vertigo [None]
  - Fatigue [None]
  - Disturbance in attention [None]
  - Blood thyroid stimulating hormone increased [Recovered/Resolved]
  - Weight increased [None]
  - Depression [None]
  - Hyperhidrosis [None]
  - Decreased interest [None]

NARRATIVE: CASE EVENT DATE: 2017
